FAERS Safety Report 10018441 (Version 2)
Quarter: 2014Q1

REPORT INFORMATION
  Report Type: Spontaneous
  Country: US (occurrence: US)
  Receive Date: 20140318
  Receipt Date: 20140321
  Transmission Date: 20141002
  Serious: Yes (Death)
  Sender: FDA-Public Use
  Company Number: US-BAXTER-2014BAX013357

PATIENT
  Sex: Female

DRUGS (2)
  1. DIANEAL PD2 [Suspect]
     Indication: PERITONEAL DIALYSIS
     Route: 033
     Dates: start: 2008, end: 20140307
  2. DIANEAL PD2 [Suspect]
     Indication: RENAL FAILURE CHRONIC

REACTIONS (1)
  - Cardiac failure [Fatal]
